FAERS Safety Report 4922064-9 (Version None)
Quarter: 2006Q1

REPORT INFORMATION
  Report Type: 
  Country: None (occurrence: None)
  Receive Date: 20060222
  Receipt Date: 20060222
  Transmission Date: 20060701
  Serious: Yes (Hospitalization)
  Sender: FDA-Public Use
  Company Number: None

PATIENT
  Age: 76 Year
  Sex: Female
  Weight: 85.7298 kg

DRUGS (12)
  1. WARFARIN [Suspect]
     Indication: DEEP VEIN THROMBOSIS
     Dosage: 4 MG PO DAILY  CHRONIC
     Route: 048
  2. ASPIRIN [Suspect]
     Indication: CORONARY ARTERY DISEASE
     Dosage: 81 MG PO DAILY  CHRONIC
     Route: 048
  3. WARFARIN [Concomitant]
  4. ASPIRIN [Concomitant]
  5. PLAVIX [Concomitant]
  6. VYTORIN [Concomitant]
  7. IRON [Concomitant]
  8. WELCHOL [Concomitant]
  9. DIABETA [Concomitant]
  10. LISINOPRIL [Concomitant]
  11. FOLIC ACID [Concomitant]
  12. NEXIUM [Concomitant]

REACTIONS (5)
  - DIZZINESS [None]
  - EPISTAXIS [None]
  - INTERNATIONAL NORMALISED RATIO INCREASED [None]
  - METASTASES TO LIVER [None]
  - PANCREATIC CARCINOMA METASTATIC [None]
